FAERS Safety Report 7648407-3 (Version None)
Quarter: 2011Q3

REPORT INFORMATION
  Report Type: 
  Country: None (occurrence: None)
  Receive Date: 20110801
  Receipt Date: 20110722
  Transmission Date: 20111222
  Serious: Yes (Hospitalization)
  Sender: FDA-Public Use
  Company Number: SE-ASTRAZENECA-2011SE43922

PATIENT
  Age: 29767 Day
  Sex: Female

DRUGS (14)
  1. ATACAND [Suspect]
     Indication: ESSENTIAL HYPERTENSION
     Route: 048
     Dates: end: 20110429
  2. GABAPENTIN [Concomitant]
  3. ACETAMINOPHEN [Concomitant]
  4. NOVOMIX [Concomitant]
  5. METFORMIN HCL [Suspect]
     Indication: DIABETES MELLITUS
     Route: 048
  6. OMEPRAZOLE [Concomitant]
     Route: 065
  7. CITALOPRAM HYDROBROMIDE [Concomitant]
  8. NOVORAPID [Concomitant]
  9. SOTALOL HYDROCHLORIDE [Suspect]
     Indication: ATRIAL FIBRILLATION
     Route: 048
     Dates: end: 20110429
  10. ENALAPRIL MALEATE [Concomitant]
  11. ZOPIKLON [Concomitant]
  12. OXASCAND [Concomitant]
  13. SIMVASTATIN [Concomitant]
  14. SALURES [Concomitant]

REACTIONS (3)
  - HYPERKALAEMIA [None]
  - BRADYCARDIA [None]
  - BLOOD CREATININE INCREASED [None]
